FAERS Safety Report 18283282 (Version 1)
Quarter: 2020Q3

REPORT INFORMATION
  Report Type: Spontaneous
  Country: GB (occurrence: GB)
  Receive Date: 20200918
  Receipt Date: 20200918
  Transmission Date: 20201103
  Serious: Yes (Other)
  Sender: FDA-Public Use
  Company Number: GB-ASTRAZENECA-2020SF17293

PATIENT
  Age: 70 Year
  Sex: Female
  Weight: 68.9 kg

DRUGS (2)
  1. LEVOTHYROXINE. [Concomitant]
     Active Substance: LEVOTHYROXINE
  2. OMEPRAZOLE. [Suspect]
     Active Substance: OMEPRAZOLE
     Indication: CHEST PAIN
     Route: 048
     Dates: start: 20200619, end: 20200817

REACTIONS (10)
  - Poor quality sleep [Recovering/Resolving]
  - Feeling abnormal [Recovering/Resolving]
  - Tinnitus [Recovering/Resolving]
  - Cognitive disorder [Recovering/Resolving]
  - Bradykinesia [Recovering/Resolving]
  - Visual impairment [Recovering/Resolving]
  - Fatigue [Recovering/Resolving]
  - Aphasia [Recovering/Resolving]
  - Eye pain [Recovering/Resolving]
  - Bradyphrenia [Recovering/Resolving]

NARRATIVE: CASE EVENT DATE: 20200621
